FAERS Safety Report 24664910 (Version 1)
Quarter: 2024Q4

REPORT INFORMATION
  Report Type: Spontaneous
  Country: CA (occurrence: CA)
  Receive Date: 20241126
  Receipt Date: 20241126
  Transmission Date: 20250115
  Serious: Yes (Other)
  Sender: PFIZER
  Company Number: CA-PFIZER INC-202300449504

PATIENT
  Age: 47 Year
  Sex: Female

DRUGS (2)
  1. RUXIENCE [Suspect]
     Active Substance: RITUXIMAB-PVVR
     Indication: Fibrillary glomerulonephritis
     Dosage: 1000 MG EVERY 2 WEEKS (DAY 1 DAY 15)
     Route: 042
     Dates: start: 20241029
  2. RUXIENCE [Suspect]
     Active Substance: RITUXIMAB-PVVR
     Dosage: 1000 MG EVERY 2 WEEKS (DAY 1 DAY 15)
     Route: 042
     Dates: start: 20241113

REACTIONS (12)
  - Asthenia [Recovering/Resolving]
  - Arthralgia [Recovering/Resolving]
  - Pain of skin [Recovering/Resolving]
  - Upper respiratory tract infection [Recovering/Resolving]
  - Headache [Recovering/Resolving]
  - Gastrooesophageal reflux disease [Recovering/Resolving]
  - Haematuria [Recovering/Resolving]
  - Neutrophil count increased [Recovering/Resolving]
  - Myalgia [Recovering/Resolving]
  - Pyrexia [Recovering/Resolving]
  - Serum sickness [Unknown]
  - Off label use [Unknown]

NARRATIVE: CASE EVENT DATE: 20241001
